FAERS Safety Report 8428899-2 (Version None)
Quarter: 2012Q2

REPORT INFORMATION
  Report Type: 
  Country: None (occurrence: None)
  Receive Date: 20120612
  Receipt Date: 20120608
  Transmission Date: 20120825
  Serious: Yes (Life-Threatening, Hospitalization, Other)
  Sender: FDA-Public Use
  Company Number: JP-COVIDIEN/TYCO HEALTHCARE/MALLINCKRODT-T201201946

PATIENT
  Age: 78 Year
  Sex: Female

DRUGS (1)
  1. OPTIRAY 160 [Suspect]
     Indication: COMPUTERISED TOMOGRAM
     Dosage: 99 ML, SINGLE
     Route: 042
     Dates: start: 20120525, end: 20120525

REACTIONS (2)
  - ANAPHYLACTIC SHOCK [None]
  - HYPERTENSION [None]
